FAERS Safety Report 24325154 (Version 3)
Quarter: 2024Q3

REPORT INFORMATION
  Report Type: Spontaneous
  Country: US (occurrence: US)
  Receive Date: 20240916
  Receipt Date: 20240925
  Transmission Date: 20241016
  Serious: Yes (Other)
  Sender: NOVARTIS
  Company Number: US-002147023-NVSC2024US181418

PATIENT
  Age: 80 Year
  Sex: Female
  Weight: 79.4 kg

DRUGS (5)
  1. LETROZOLE [Suspect]
     Active Substance: LETROZOLE
     Indication: Breast cancer female
     Dosage: 2.5 MG, QD
     Route: 065
  2. IBRANCE [Suspect]
     Active Substance: PALBOCICLIB
     Indication: Breast cancer metastatic
     Dosage: 125 MG, CYCLIC (ONCE DAILY FOR 3 WEEKS ON AND 1 WEEK OFF)
     Route: 065
     Dates: start: 20211228
  3. IBRANCE [Suspect]
     Active Substance: PALBOCICLIB
     Indication: Breast cancer metastatic
     Dosage: 100 MG, CYCLIC (1 TABLET BY MOUTH FOR DAYS 1-21 THEN OFF FOR DAYS 22-28)
     Route: 048
  4. SYNTHROID [Concomitant]
     Active Substance: LEVOTHYROXINE SODIUM
     Indication: Product used for unknown indication
     Dosage: UNK
     Route: 065
  5. ZOMETA [Concomitant]
     Active Substance: ZOLEDRONIC ACID
     Indication: Bone disorder
     Dosage: UNK
     Route: 065

REACTIONS (13)
  - Breast cancer metastatic [Unknown]
  - Malignant neoplasm progression [Unknown]
  - Tooth abscess [Recovered/Resolved]
  - Mental disorder [Unknown]
  - Arthritis [Unknown]
  - Crying [Unknown]
  - Depression [Unknown]
  - Anxiety [Unknown]
  - Memory impairment [Unknown]
  - Abscess [Unknown]
  - White blood cell count decreased [Recovering/Resolving]
  - Fatigue [Recovering/Resolving]
  - Product dose omission in error [Unknown]

NARRATIVE: CASE EVENT DATE: 20220901
